FAERS Safety Report 21628245 (Version 2)
Quarter: 2022Q4

REPORT INFORMATION
  Report Type: Report from Study
  Country: KR (occurrence: KR)
  Receive Date: 20221122
  Receipt Date: 20221230
  Transmission Date: 20230112
  Serious: Yes (Hospitalization)
  Sender: FDA-Public Use
  Company Number: KR-GLAXOSMITHKLINE-KR2022GSK171604

PATIENT

DRUGS (15)
  1. BELIMUMAB [Suspect]
     Active Substance: BELIMUMAB
     Indication: Systemic lupus erythematosus
     Dosage: 470 Z (FOR THE FIRST THREE INFUSIONS, EVERY 2 WEEKS AFTER THAT, EVERY 4 WEEKS)
     Route: 042
     Dates: start: 20220628, end: 20221019
  2. PREDNISOLONE [Concomitant]
     Active Substance: PREDNISOLONE
     Indication: Product used for unknown indication
     Dosage: 15 MG, QD
     Route: 048
     Dates: start: 20210524, end: 20220823
  3. PREDNISOLONE [Concomitant]
     Active Substance: PREDNISOLONE
     Dosage: 12.5 MG, QD
     Route: 048
     Dates: start: 20220824, end: 20221018
  4. PREDNISOLONE [Concomitant]
     Active Substance: PREDNISOLONE
     Dosage: 10 MG, QD
     Route: 048
     Dates: start: 20221019
  5. PROGRAF [Concomitant]
     Active Substance: TACROLIMUS
     Indication: Product used for unknown indication
     Dosage: 1 MG, QD
     Route: 048
     Dates: start: 20190111
  6. NEWHYALUNI EYE DROP 0.15% [Concomitant]
     Indication: Dry eye
     Dosage: 1 DROP , Z (6 PER DAY)
     Route: 050
     Dates: start: 20220831
  7. MYCOPHENOLATE MOFETIL [Concomitant]
     Active Substance: MYCOPHENOLATE MOFETIL
     Indication: Product used for unknown indication
     Dosage: 500 MG, QD
     Route: 048
     Dates: start: 20170928
  8. SYNTHROID [Concomitant]
     Active Substance: LEVOTHYROXINE SODIUM
     Indication: Hypothyroidism
     Dosage: 0.025 MG, QD
     Route: 048
     Dates: start: 20220704
  9. ESROBAN OINTMENT [Concomitant]
     Indication: Systemic lupus erythematosus
     Dosage: 1 APPLICATION, QD
     Route: 050
     Dates: start: 20220425
  10. TOPICRO OINTMENT [Concomitant]
     Indication: Systemic lupus erythematosus
     Dosage: 1 APPLICATION, QD
     Route: 050
     Dates: start: 20220425
  11. DERMOFIX CREAM [Concomitant]
     Indication: Prophylaxis
     Dosage: 1 APPLICATION,  QD
     Route: 050
     Dates: start: 20210524
  12. MYCAL-D TABLET [Concomitant]
     Indication: Osteoporosis
     Dosage: 1 DF, QD
     Route: 048
     Dates: start: 20220629
  13. ADALAT [Concomitant]
     Active Substance: NIFEDIPINE
     Indication: Lupus nephritis
     Dosage: 30 MG, QD
     Route: 048
     Dates: start: 20200610
  14. DEXILANT [Concomitant]
     Active Substance: DEXLANSOPRAZOLE
     Indication: Gastrointestinal disorder prophylaxis
     Dosage: 30 MG, QD
     Route: 048
     Dates: start: 20200618
  15. LIPITOR [Concomitant]
     Active Substance: ATORVASTATIN CALCIUM
     Indication: Hyperlipidaemia
     Dosage: 10 MG, QD
     Route: 048
     Dates: start: 20210524

REACTIONS (1)
  - Synovial cyst [Recovering/Resolving]

NARRATIVE: CASE EVENT DATE: 20221025
